FAERS Safety Report 19074081 (Version 1)
Quarter: 2021Q1

REPORT INFORMATION
  Report Type: Spontaneous
  Country: CA (occurrence: CA)
  Receive Date: 20210330
  Receipt Date: 20210330
  Transmission Date: 20210420
  Serious: Yes (Hospitalization, Other)
  Sender: FDA-Public Use
  Company Number: CA-BRISTOL-MYERS SQUIBB COMPANY-BMS-2021-028555

PATIENT
  Age: 68 Year
  Sex: Male
  Weight: 74.4 kg

DRUGS (3)
  1. HYDREA [Suspect]
     Active Substance: HYDROXYUREA
     Indication: PLATELET COUNT DECREASED
  2. HYDREA [Suspect]
     Active Substance: HYDROXYUREA
     Indication: RED BLOOD CELL COUNT DECREASED
  3. HYDREA [Suspect]
     Active Substance: HYDROXYUREA
     Indication: POLYCYTHAEMIA
     Dosage: 500 MILLIGRAM, QD
     Route: 048
     Dates: start: 201704

REACTIONS (3)
  - Atrial fibrillation [Unknown]
  - Infusion site infection [Unknown]
  - Thrombosis [Unknown]
